FAERS Safety Report 12271965 (Version 1)
Quarter: 2016Q2

REPORT INFORMATION
  Report Type: Spontaneous
  Country: US (occurrence: US)
  Receive Date: 20160415
  Receipt Date: 20160415
  Transmission Date: 20160815
  Serious: No
  Sender: FDA-Public Use
  Company Number: US-FERRINGPH-2015FE01614

PATIENT
  Sex: Male

DRUGS (1)
  1. FIRMAGON [Suspect]
     Active Substance: DEGARELIX ACETATE
     Indication: PROSTATE CANCER

REACTIONS (1)
  - Incorrect dose administered [Unknown]
